FAERS Safety Report 16709502 (Version 4)
Quarter: 2025Q2

REPORT INFORMATION
  Report Type: Report from Study
  Country: AU (occurrence: AU)
  Receive Date: 20190816
  Receipt Date: 20250509
  Transmission Date: 20250717
  Serious: Yes (Other)
  Sender: NOVARTIS
  Company Number: PHHY2018AU008212

PATIENT
  Age: 4 Year
  Sex: Female
  Weight: 14.4 kg

DRUGS (4)
  1. MEKINIST [Suspect]
     Active Substance: TRAMETINIB DIMETHYL SULFOXIDE
     Indication: Neurofibroma
     Dosage: 0.032 MG/KG, (0.5 MG) QD
     Route: 048
     Dates: start: 20180509
  2. PREDNISOLONE [Concomitant]
     Active Substance: PREDNISOLONE
     Indication: Product used for unknown indication
     Route: 048
  3. FLUTICASONE [Concomitant]
     Active Substance: FLUTICASONE
     Indication: Product used for unknown indication
     Route: 065
  4. TAFINLAR [Suspect]
     Active Substance: DABRAFENIB MESYLATE
     Indication: Neurofibroma
     Route: 048

REACTIONS (5)
  - Obliterative bronchiolitis [Recovering/Resolving]
  - Hypoacusis [Recovering/Resolving]
  - Developmental delay [Unknown]
  - Weight decreased [Recovering/Resolving]
  - Adenovirus test positive [Recovering/Resolving]

NARRATIVE: CASE EVENT DATE: 20190718
